FAERS Safety Report 9324442 (Version 1)
Quarter: 2013Q2

REPORT INFORMATION
  Report Type: Spontaneous
  Country: IT (occurrence: IT)
  Receive Date: 20130603
  Receipt Date: 20130603
  Transmission Date: 20140414
  Serious: Yes (Other)
  Sender: FDA-Public Use
  Company Number: IT-PFIZER INC-2013166917

PATIENT
  Age: 51 Year
  Sex: Male

DRUGS (1)
  1. TRIAZOLAM [Suspect]
     Dosage: 1.5 MG, UNK
     Route: 048
     Dates: start: 20130514, end: 20130515

REACTIONS (2)
  - Drug abuse [Unknown]
  - Suicide attempt [Unknown]
